FAERS Safety Report 10450117 (Version 1)
Quarter: 2014Q3

REPORT INFORMATION
  Report Type: Spontaneous
  Country: IT (occurrence: IT)
  Receive Date: 20140912
  Receipt Date: 20140912
  Transmission Date: 20150326
  Serious: Yes (Disabling)
  Sender: FDA-Public Use
  Company Number: IT-TEVA-507508ISR

PATIENT
  Age: 59 Year
  Sex: Female
  Weight: 60 kg

DRUGS (3)
  1. HERCEPTIN [Suspect]
     Active Substance: TRASTUZUMAB
     Indication: BREAST NEOPLASM
     Dosage: 360 MILLIGRAM DAILY;
     Route: 041
     Dates: start: 20140203, end: 20140414
  2. ENDOXAN BAXTER [Concomitant]
     Active Substance: CYCLOPHOSPHAMIDE
     Indication: BREAST NEOPLASM
     Dosage: 1000 MILLIGRAM DAILY;
     Route: 041
     Dates: start: 20131014, end: 20140102
  3. DOXORUBICINA TEVA [Suspect]
     Active Substance: DOXORUBICIN
     Indication: BREAST NEOPLASM
     Dosage: 100 MILLIGRAM DAILY;
     Route: 041
     Dates: start: 20131014, end: 20140102

REACTIONS (2)
  - Pulmonary hypertension [Not Recovered/Not Resolved]
  - Cardiac failure [Not Recovered/Not Resolved]

NARRATIVE: CASE EVENT DATE: 20140605
